FAERS Safety Report 4751740-6 (Version None)
Quarter: 2005Q3

REPORT INFORMATION
  Report Type: 
  Country: None (occurrence: None)
  Receive Date: 20050822
  Receipt Date: 20050805
  Transmission Date: 20060218
  Serious: Yes (Other)
  Sender: FDA-Public Use
  Company Number: 2005-00034

PATIENT

DRUGS (2)
  1. INTEGRILIN [Suspect]
     Indication: ANGIOPLASTY
  2. PLAVIX [Suspect]

REACTIONS (1)
  - CORONARY ARTERY RESTENOSIS [None]
